FAERS Safety Report 10735904 (Version 1)
Quarter: 2015Q1

REPORT INFORMATION
  Report Type: Spontaneous
  Country: US (occurrence: None)
  Receive Date: 20150122
  Receipt Date: 20150122
  Transmission Date: 20150721
  Serious: Yes (Hospitalization)
  Sender: FDA-Public Use
  Company Number: None

PATIENT
  Age: 55 Year
  Sex: Female
  Weight: 84.4 kg

DRUGS (1)
  1. TEMOZOLOMIDE. [Suspect]
     Active Substance: TEMOZOLOMIDE
     Dates: end: 20141215

REACTIONS (6)
  - Haemoptysis [None]
  - Asthenia [None]
  - Anaemia [None]
  - Pneumonia [None]
  - Pleural effusion [None]
  - Chest discomfort [None]

NARRATIVE: CASE EVENT DATE: 20141212
